FAERS Safety Report 6569569-5 (Version None)
Quarter: 2010Q1

REPORT INFORMATION
  Report Type: 
  Country: None (occurrence: None)
  Receive Date: 20100203
  Receipt Date: 20100203
  Transmission Date: 20100710
  Serious: Yes (Disabling)
  Sender: FDA-Public Use
  Company Number: None

PATIENT
  Sex: Female

DRUGS (1)
  1. NEURONTIN [Suspect]
     Indication: EPILEPSY
     Dosage: 800 MG 4X/DAY

REACTIONS (6)
  - ANXIETY [None]
  - ARTHRALGIA [None]
  - CHEST PAIN [None]
  - DRY MOUTH [None]
  - NERVOUSNESS [None]
  - PARAESTHESIA [None]
